FAERS Safety Report 7595652-1 (Version None)
Quarter: 2011Q3

REPORT INFORMATION
  Report Type: 
  Country: None (occurrence: None)
  Receive Date: 20110707
  Receipt Date: 20110627
  Transmission Date: 20111222
  Serious: Yes (Death, Hospitalization, Disabling, Other)
  Sender: FDA-Public Use
  Company Number: US-MERCK-1101USA01553

PATIENT
  Age: 58 Year
  Sex: Female
  Weight: 68 kg

DRUGS (2)
  1. FOSAMAX [Suspect]
     Indication: OSTEOPOROSIS
     Route: 048
     Dates: start: 20030116, end: 20050829
  2. FOSAMAX [Suspect]
     Indication: OSTEOPENIA
     Route: 048
     Dates: start: 20030116, end: 20050829

REACTIONS (23)
  - RAYNAUD'S PHENOMENON [None]
  - VOCAL CORD POLYP [None]
  - GALLBLADDER DISORDER [None]
  - PERIPHERAL VASCULAR DISORDER [None]
  - OSTEONECROSIS [None]
  - STRESS FRACTURE [None]
  - WRIST FRACTURE [None]
  - LOW TURNOVER OSTEOPATHY [None]
  - OSTEOPOROSIS [None]
  - BUNDLE BRANCH BLOCK RIGHT [None]
  - NEUROPATHY PERIPHERAL [None]
  - HYPERLIPIDAEMIA [None]
  - APPENDIX DISORDER [None]
  - OSTEONECROSIS OF JAW [None]
  - SLEEP APNOEA SYNDROME [None]
  - RESTLESS LEGS SYNDROME [None]
  - CARPAL TUNNEL SYNDROME [None]
  - ARTHRITIS [None]
  - FEMUR FRACTURE [None]
  - GASTRIC DISORDER [None]
  - DEATH [None]
  - BLADDER DISORDER [None]
  - LUMBAR SPINAL STENOSIS [None]
